FAERS Safety Report 10081932 (Version 2)
Quarter: 2014Q2

REPORT INFORMATION
  Report Type: Spontaneous
  Country: FR (occurrence: FR)
  Receive Date: 20140416
  Receipt Date: 20140424
  Transmission Date: 20141212
  Serious: Yes (Hospitalization)
  Sender: FDA-Public Use
  Company Number: FR-GLAXOSMITHKLINE-B0984951A

PATIENT
  Age: 42 Year
  Sex: Female
  Weight: 65 kg

DRUGS (1)
  1. SERETIDE DISKUS [Suspect]
     Indication: RESPIRATORY DISORDER
     Dosage: 60PUFF SINGLE DOSE
     Route: 055
     Dates: start: 20140219

REACTIONS (6)
  - Tachycardia [Recovered/Resolved]
  - Palpitations [Recovered/Resolved]
  - Sleep disorder [Recovered/Resolved]
  - Accidental overdose [Unknown]
  - Incorrect dose administered [Unknown]
  - Medication error [Unknown]
